FAERS Safety Report 7238175-1 (Version None)
Quarter: 2011Q1

REPORT INFORMATION
  Report Type: 
  Country: None (occurrence: None)
  Receive Date: 20110121
  Receipt Date: 20110112
  Transmission Date: 20110831
  Serious: Yes (Hospitalization)
  Sender: FDA-Public Use
  Company Number: JP-JNJFOC-20100507115

PATIENT
  Age: 27 Year
  Sex: Male
  Weight: 55 kg

DRUGS (8)
  1. REMICADE [Suspect]
     Route: 042
  2. ALLELOCK [Concomitant]
     Indication: PUSTULAR PSORIASIS
     Route: 048
  3. FERROUS CITRATE [Concomitant]
     Indication: RENAL FAILURE
     Route: 048
  4. ALOSITOL [Concomitant]
     Indication: HYPERTENSION
  5. REMICADE [Suspect]
     Indication: PUSTULAR PSORIASIS
     Route: 042
  6. NERISONA [Concomitant]
     Indication: PUSTULAR PSORIASIS
     Dosage: ROUTE: OD
  7. WHITE PETROLATUM [Concomitant]
     Indication: PUSTULAR PSORIASIS
     Dosage: ROUTE: OD  DOSE 2 GM
  8. ETRETINATE [Concomitant]
     Indication: PUSTULAR PSORIASIS
     Route: 048

REACTIONS (1)
  - ENTERITIS [None]
